FAERS Safety Report 6074720-X (Version None)
Quarter: 2009Q1

REPORT INFORMATION
  Report Type: 
  Country: None (occurrence: None)
  Receive Date: 20090212
  Receipt Date: 20090204
  Transmission Date: 20090719
  Serious: Yes (Other)
  Sender: FDA-Public Use
  Company Number: JP-JNJFOC-20090105547

PATIENT
  Age: 70 Year
  Sex: Male
  Weight: 63 kg

DRUGS (9)
  1. FENTANYL CITRATE [Suspect]
     Route: 062
  2. FENTANYL CITRATE [Suspect]
     Indication: CANCER PAIN
     Route: 062
  3. MENTHA OIL [Concomitant]
     Route: 065
  4. GLYCYRRHIZIN GLYCINE CYSTEINE [Concomitant]
     Route: 065
  5. P N TWIN [Concomitant]
     Route: 041
  6. ELEMENMIC [Concomitant]
     Route: 041
  7. MULTAMIN [Concomitant]
     Indication: PARENTERAL NUTRITION
     Route: 041
  8. LANTUS [Concomitant]
     Route: 058
  9. GASTER D [Concomitant]
     Route: 048

REACTIONS (4)
  - BLOOD ALKALINE PHOSPHATASE INCREASED [None]
  - GAMMA-GLUTAMYLTRANSFERASE INCREASED [None]
  - PANCREATIC CARCINOMA [None]
  - PRURITUS GENERALISED [None]
